FAERS Safety Report 21804792 (Version 2)
Quarter: 2024Q2

REPORT INFORMATION
  Report Type: Report from Study
  Country: GB (occurrence: GB)
  Receive Date: 20230102
  Receipt Date: 20240410
  Transmission Date: 20240715
  Serious: Yes (Hospitalization, Other)
  Sender: FDA-Public Use
  Company Number: GB-TEVA-2022-GB-2840301

PATIENT
  Sex: Female

DRUGS (9)
  1. LAMOTRIGINE [Suspect]
     Active Substance: LAMOTRIGINE
     Indication: Epilepsy of infancy with migrating focal seizures
     Route: 065
  2. TOPIRAMATE [Suspect]
     Active Substance: TOPIRAMATE
     Indication: Epilepsy of infancy with migrating focal seizures
     Route: 065
  3. LACOSAMIDE [Suspect]
     Active Substance: LACOSAMIDE
     Indication: Epilepsy of infancy with migrating focal seizures
     Route: 065
  4. ZONISAMIDE [Suspect]
     Active Substance: ZONISAMIDE
     Indication: Epilepsy of infancy with migrating focal seizures
     Route: 065
  5. QUINIDINE [Suspect]
     Active Substance: QUINIDINE
     Indication: Epilepsy of infancy with migrating focal seizures
     Route: 065
  6. CARBAMAZEPINE [Suspect]
     Active Substance: CARBAMAZEPINE
     Indication: Epilepsy of infancy with migrating focal seizures
     Route: 065
  7. PREDNISOLONE [Suspect]
     Active Substance: PREDNISOLONE
     Indication: Epilepsy of infancy with migrating focal seizures
     Route: 065
  8. VIGABATRIN [Suspect]
     Active Substance: VIGABATRIN
     Indication: Epilepsy of infancy with migrating focal seizures
     Route: 065
  9. PYRIDOXAL PHOSPHATE [Suspect]
     Active Substance: PYRIDOXAL PHOSPHATE
     Indication: Epilepsy of infancy with migrating focal seizures
     Route: 065

REACTIONS (5)
  - Epilepsy of infancy with migrating focal seizures [Unknown]
  - Vomiting [Unknown]
  - Drug ineffective [Unknown]
  - Rebound effect [Unknown]
  - Diarrhoea [Unknown]
